FAERS Safety Report 13353486 (Version 1)
Quarter: 2017Q1

REPORT INFORMATION
  Report Type: Report from Study
  Country: IN (occurrence: IN)
  Receive Date: 20170321
  Receipt Date: 20170321
  Transmission Date: 20170429
  Serious: Yes (Other)
  Sender: FDA-Public Use
  Company Number: IN-ROCHE-1909296

PATIENT
  Sex: Male

DRUGS (3)
  1. RITUXIMAB [Suspect]
     Active Substance: RITUXIMAB
     Indication: PEMPHIGUS
     Route: 042
  2. PHENIRAMINE MALEATE [Concomitant]
     Active Substance: PHENIRAMINE MALEATE
     Indication: PREMEDICATION
     Dosage: IMMEDIATELY PRIOR TO INFUSION OF RITUXIMAB
     Route: 042
  3. DEXAMETHASONE. [Concomitant]
     Active Substance: DEXAMETHASONE
     Indication: PREMEDICATION
     Dosage: 1 HOUR PRIOR TO INFUSION OF RITUXIMAB
     Route: 042

REACTIONS (2)
  - Pulmonary embolism [Recovered/Resolved]
  - Carbuncle [Unknown]
